FAERS Safety Report 16173077 (Version 1)
Quarter: 2019Q2

REPORT INFORMATION
  Report Type: Spontaneous
  Country: BR (occurrence: BR)
  Receive Date: 20190409
  Receipt Date: 20190409
  Transmission Date: 20190711
  Serious: Yes (Other)
  Sender: FDA-Public Use
  Company Number: BR-BRISTOL-MYERS SQUIBB COMPANY-BMS-2019-034010

PATIENT
  Age: 64 Year
  Sex: Male

DRUGS (4)
  1. LEVOFLOXACIN. [Concomitant]
     Active Substance: LEVOFLOXACIN
     Indication: ASCITES
     Dosage: UNK
     Route: 065
  2. GLIFAGE [Concomitant]
     Active Substance: METFORMIN HYDROCHLORIDE
     Indication: PRODUCT USED FOR UNKNOWN INDICATION
     Dosage: UNK
     Route: 065
  3. FUROSEMIDE. [Concomitant]
     Active Substance: FUROSEMIDE
     Indication: PRODUCT USED FOR UNKNOWN INDICATION
     Dosage: UNK
     Route: 065
  4. BARACLUDE [Suspect]
     Active Substance: ENTECAVIR
     Indication: HEPATITIS B
     Dosage: 0.5 MILLIGRAM, QD, 3 HOURS AFTER LUNCH
     Route: 048
     Dates: start: 201805

REACTIONS (6)
  - Loss of consciousness [Unknown]
  - Malaise [Unknown]
  - Vomiting [Unknown]
  - Aggression [Unknown]
  - Disorientation [Unknown]
  - Tremor [Unknown]

NARRATIVE: CASE EVENT DATE: 20190401
